FAERS Safety Report 17432280 (Version 1)
Quarter: 2020Q1

REPORT INFORMATION
  Report Type: Spontaneous
  Country: US (occurrence: US)
  Receive Date: 20200218
  Receipt Date: 20200218
  Transmission Date: 20200409
  Serious: No
  Sender: FDA-Public Use
  Company Number: US-SA-2020SA040050

PATIENT
  Age: 49 Year
  Sex: Female

DRUGS (12)
  1. VITAMIN D [VITAMIN D NOS] [Concomitant]
     Active Substance: VITAMIN D NOS
  2. GABAPENTIN. [Concomitant]
     Active Substance: GABAPENTIN
  3. MUPIROCIN. [Concomitant]
     Active Substance: MUPIROCIN
  4. FISH OIL [Concomitant]
     Active Substance: FISH OIL
  5. DUPIXENT [Suspect]
     Active Substance: DUPILUMAB
     Indication: DERMATITIS ATOPIC
     Dosage: 300 MG, QOW
     Route: 058
     Dates: start: 20190108
  6. TRICOR [ADENOSINE] [Concomitant]
     Active Substance: ADENOSINE
  7. CLOBETASOL E [Concomitant]
  8. MULTIVITAMINS [VITAMINS NOS] [Concomitant]
     Active Substance: VITAMINS
  9. CLONAZEPAM. [Concomitant]
     Active Substance: CLONAZEPAM
  10. MAGNESIUM [Concomitant]
     Active Substance: MAGNESIUM
  11. DULOXETINE HCL [Concomitant]
     Active Substance: DULOXETINE HYDROCHLORIDE
  12. LISINOPRIL. [Concomitant]
     Active Substance: LISINOPRIL

REACTIONS (1)
  - Dermatitis atopic [Unknown]
